FAERS Safety Report 13123359 (Version 1)
Quarter: 2017Q1

REPORT INFORMATION
  Report Type: Spontaneous
  Country: US (occurrence: US)
  Receive Date: 20170117
  Receipt Date: 20170117
  Transmission Date: 20170428
  Serious: No
  Sender: FDA-Public Use
  Company Number: US-ALLERGAN-1660811US

PATIENT
  Sex: Male

DRUGS (1)
  1. DALVANCE [Suspect]
     Active Substance: DALBAVANCIN
     Indication: SOFT TISSUE INFECTION
     Dosage: 1500 MG, UNK
     Route: 042
     Dates: start: 20160617, end: 20160617

REACTIONS (5)
  - Headache [Recovered/Resolved]
  - Chest discomfort [Recovered/Resolved]
  - Flushing [Recovered/Resolved]
  - Vomiting projectile [Recovered/Resolved]
  - Heart rate increased [Recovered/Resolved]
